FAERS Safety Report 17559330 (Version 1)
Quarter: 2020Q1

REPORT INFORMATION
  Report Type: Report from Study
  Country: DE (occurrence: DE)
  Receive Date: 20200319
  Receipt Date: 20200319
  Transmission Date: 20200409
  Serious: No
  Sender: FDA-Public Use
  Company Number: DE-ROCHE-2545892

PATIENT
  Age: 23 Year
  Sex: Female

DRUGS (4)
  1. ESCITALOPRAM [Concomitant]
     Active Substance: ESCITALOPRAM OXALATE
     Route: 065
  2. OCREVUS [Suspect]
     Active Substance: OCRELIZUMAB
     Indication: MULTIPLE SCLEROSIS
     Dosage: 19/FEB/2020
     Route: 042
     Dates: start: 20200205
  3. ALPICORT [Concomitant]
     Route: 065
  4. QUETIAPIN [Concomitant]
     Active Substance: QUETIAPINE
     Route: 065

REACTIONS (7)
  - Oral herpes [Recovered/Resolved]
  - Chills [Not Recovered/Not Resolved]
  - Fatigue [Recovering/Resolving]
  - Body temperature decreased [Recovered/Resolved]
  - Nausea [Not Recovered/Not Resolved]
  - Blood pressure decreased [Recovered/Resolved]
  - Gastrointestinal infection [Recovered/Resolved]

NARRATIVE: CASE EVENT DATE: 20200205
